FAERS Safety Report 5393937-0 (Version None)
Quarter: 2007Q3

REPORT INFORMATION
  Report Type: 
  Country: None (occurrence: None)
  Receive Date: 20070723
  Receipt Date: 20061120
  Transmission Date: 20080115
  Serious: No
  Sender: FDA-Public Use
  Company Number: A0628103A

PATIENT
  Age: 74 Year
  Sex: Female

DRUGS (7)
  1. AVANDIA [Suspect]
     Dosage: 4MG PER DAY
     Route: 048
     Dates: start: 20050501
  2. METFORMIN HCL [Concomitant]
  3. VYTORIN [Concomitant]
  4. ALTACE [Concomitant]
  5. GLUCOSAMINE/CHONDROITIN [Concomitant]
  6. MULTI-VITAMIN [Concomitant]
  7. FLAXSEED OIL [Concomitant]

REACTIONS (4)
  - BLOOD GLUCOSE DECREASED [None]
  - DIZZINESS [None]
  - NAUSEA [None]
  - POLLAKIURIA [None]
